FAERS Safety Report 5574705-3 (Version None)
Quarter: 2007Q4

REPORT INFORMATION
  Report Type: 
  Country: None (occurrence: None)
  Receive Date: 20071221
  Receipt Date: 20071221
  Transmission Date: 20080405
  Serious: Yes (Death)
  Sender: FDA-Public Use
  Company Number: None

PATIENT
  Age: 37 Year
  Sex: Male
  Weight: 67.1 kg

DRUGS (10)
  1. TRUVADA [Suspect]
     Indication: HIV INFECTION
     Dosage: 1 TABLET QD PO
     Route: 048
     Dates: start: 20071101, end: 20071119
  2. EFAVIRENZ [Suspect]
     Indication: HIV INFECTION
     Dosage: 1 TABLET QD PO
     Route: 048
     Dates: start: 20071101, end: 20071119
  3. RIFAMPIN/ISONIAZID [Concomitant]
  4. PIRAZINAMIDE [Concomitant]
  5. SULFAMETOXAZOL/TRIMETOPRIM [Concomitant]
  6. VITAMIN B6 [Concomitant]
  7. AZITHROMYCIN [Concomitant]
  8. AMITRIPTILIN [Concomitant]
  9. ACETAMINOPHEN W/ CODEINE [Concomitant]
  10. DEXCHLORPHENIRAMINE [Concomitant]

REACTIONS (3)
  - CD4 LYMPHOCYTES DECREASED [None]
  - LOSS OF CONSCIOUSNESS [None]
  - TREATMENT NONCOMPLIANCE [None]
